FAERS Safety Report 8286585-6 (Version None)
Quarter: 2012Q2

REPORT INFORMATION
  Report Type: 
  Country: None (occurrence: None)
  Receive Date: 20120416
  Receipt Date: 20120410
  Transmission Date: 20120825
  Serious: Yes (Hospitalization, Disabling, Other)
  Sender: FDA-Public Use
  Company Number: US-BAYER-2011-045180

PATIENT
  Age: 50 Year
  Sex: Female
  Weight: 78.005 kg

DRUGS (10)
  1. ALPRAZOLAM [Concomitant]
     Indication: ANXIETY
     Dosage: 0.25 MG, TID
     Dates: start: 20000101
  2. DROSPIRENONE AND ETHINYL ESTRADIOL [Suspect]
  3. SOLU-MEDROL [Concomitant]
  4. YASMIN [Suspect]
     Indication: PREMENSTRUAL SYNDROME
     Dosage: UNK
     Route: 048
     Dates: start: 20021001, end: 20050501
  5. DROSPIRENONE AND ETHINYL ESTRADIOL [Suspect]
     Indication: PREMENSTRUAL SYNDROME
     Dosage: UNK
     Route: 048
     Dates: start: 20080501, end: 20091101
  6. PROZAC [Concomitant]
     Dosage: 40 MG, QID
  7. FLUOXETINE [Concomitant]
     Indication: DEPRESSION
     Dosage: 20 MG, QD
     Dates: start: 20000101
  8. YASMIN [Suspect]
  9. PROTONIX [Concomitant]
     Indication: DYSPEPSIA
     Dosage: 40 MG, QD
     Route: 048
     Dates: start: 20060101, end: 20090101
  10. XANAX [Concomitant]
     Indication: ANXIETY
     Dosage: 0.25 MG, TID

REACTIONS (7)
  - PULMONARY EMBOLISM [None]
  - DEEP VEIN THROMBOSIS [None]
  - POST THROMBOTIC SYNDROME [None]
  - PSYCHOLOGICAL TRAUMA [None]
  - ANHEDONIA [None]
  - ANXIETY [None]
  - PAIN [None]
